FAERS Safety Report 15921978 (Version 2)
Quarter: 2019Q1

REPORT INFORMATION
  Report Type: Spontaneous
  Country: US (occurrence: US)
  Receive Date: 20190206
  Receipt Date: 20190228
  Transmission Date: 20190417
  Serious: Yes (Other)
  Sender: FDA-Public Use
  Company Number: US-BAYER-2019-025215

PATIENT
  Age: 44 Year
  Sex: Female
  Weight: 82.54 kg

DRUGS (2)
  1. MIRENA [Suspect]
     Active Substance: LEVONORGESTREL
     Indication: CONTRACEPTION
  2. MIRENA [Suspect]
     Active Substance: LEVONORGESTREL
     Indication: CONTRACEPTION
     Dosage: 20 MCG/24HR, CONT
     Route: 015
     Dates: start: 20170927

REACTIONS (4)
  - Complication of device removal [None]
  - Device difficult to use [None]
  - Uterine perforation [Not Recovered/Not Resolved]
  - Labelled drug-disease interaction medication error [None]

NARRATIVE: CASE EVENT DATE: 20181214
